FAERS Safety Report 22082956 (Version 5)
Quarter: 2024Q2

REPORT INFORMATION
  Report Type: Report from Study
  Country: KR (occurrence: KR)
  Receive Date: 20230310
  Receipt Date: 20240402
  Transmission Date: 20240716
  Serious: Yes (Hospitalization, Other)
  Sender: FDA-Public Use
  Company Number: KR-002147023-NVSC2023KR040299

PATIENT
  Age: 59 Year
  Sex: Female
  Weight: 61.1 kg

DRUGS (10)
  1. PIQRAY [Suspect]
     Active Substance: ALPELISIB
     Indication: Hormone receptor positive HER2 negative breast cancer
     Dosage: 300 MG, QD
     Route: 048
     Dates: start: 20220803, end: 20220817
  2. PIQRAY [Suspect]
     Active Substance: ALPELISIB
     Dosage: 300 MG, QD
     Route: 048
     Dates: start: 20221221
  3. FASLODEX [Concomitant]
     Active Substance: FULVESTRANT
     Indication: Breast cancer metastatic
     Dosage: 500 MG, PRN
     Route: 030
     Dates: start: 20220803
  4. MEDILAC DS [Concomitant]
     Indication: Prophylaxis
     Dosage: 2 DOSAGE FORM, BID (ENTERIC CAP)
     Route: 048
     Dates: start: 20190724
  5. ACECLOFENAC [Concomitant]
     Active Substance: ACECLOFENAC
     Indication: Metastases to bone
     Dosage: 100 MG, BID
     Route: 048
     Dates: start: 20221121, end: 20230104
  6. ACECLOFENAC [Concomitant]
     Active Substance: ACECLOFENAC
     Dosage: 100 MG, QD
     Route: 048
     Dates: start: 20230104
  7. NALOXONE HYDROCHLORIDE\OXYCODONE HYDROCHLORIDE [Concomitant]
     Active Substance: NALOXONE HYDROCHLORIDE\OXYCODONE HYDROCHLORIDE
     Indication: Metastases to bone
     Dosage: 1 DOSAGE FORM, BID
     Route: 048
     Dates: start: 20221121, end: 20230104
  8. NALOXONE HYDROCHLORIDE\OXYCODONE HYDROCHLORIDE [Concomitant]
     Active Substance: NALOXONE HYDROCHLORIDE\OXYCODONE HYDROCHLORIDE
     Dosage: 1 DOSAGE FORM, QD
     Route: 048
     Dates: start: 20230104
  9. DICAMAX [Concomitant]
     Indication: Metastases to bone
     Dosage: 1 DOSAGE FORM, QD (1000)
     Route: 048
     Dates: start: 20200923
  10. DAEWOONG URSA B [Concomitant]
     Indication: Liver disorder
     Dosage: 200 MG, BID
     Route: 048
     Dates: start: 20220126

REACTIONS (4)
  - Humerus fracture [Recovered/Resolved]
  - Fall [Recovered/Resolved]
  - Diabetes mellitus [Recovering/Resolving]
  - Depression [Recovering/Resolving]

NARRATIVE: CASE EVENT DATE: 20220817
